FAERS Safety Report 5395238-3 (Version None)
Quarter: 2007Q3

REPORT INFORMATION
  Report Type: 
  Country: None (occurrence: None)
  Receive Date: 20070724
  Receipt Date: 20070717
  Transmission Date: 20080115
  Serious: Yes (Other)
  Sender: FDA-Public Use
  Company Number: US-GENENTECH-244641

PATIENT
  Sex: Male
  Weight: 28.118 kg

DRUGS (1)
  1. NUTROPIN AQ [Suspect]
     Indication: GROWTH HORMONE DEFICIENCY
     Dosage: 1.5 MG, QD
     Route: 058
     Dates: start: 20060801

REACTIONS (2)
  - HYPERCHOLESTEROLAEMIA [None]
  - INFECTIOUS MONONUCLEOSIS [None]
